FAERS Safety Report 4749293-1 (Version None)
Quarter: 2005Q3

REPORT INFORMATION
  Report Type: 
  Country: None (occurrence: None)
  Receive Date: 20050812
  Receipt Date: 20050519
  Transmission Date: 20060218
  Serious: No
  Sender: FDA-Public Use
  Company Number: 405455

PATIENT
  Age: 58 Year
  Sex: Male
  Weight: 76.2 kg

DRUGS (7)
  1. PEGASYS [Suspect]
     Indication: HEPATITIS C
     Dosage: 180 MCG 1 PER WEEK SUBCUTANEOUS
     Route: 058
     Dates: start: 20050215
  2. COPEGUS [Suspect]
     Indication: HEPATITIS C
     Dosage: 1000 MG DAILY ORAL
     Route: 048
     Dates: start: 20050215
  3. BUSPAR [Concomitant]
  4. PROZAC [Concomitant]
  5. TEGRETOL [Concomitant]
  6. WELLBUTRIN [Concomitant]
  7. PROCRIT [Concomitant]

REACTIONS (8)
  - DIFFICULTY IN WALKING [None]
  - DYSGEUSIA [None]
  - FATIGUE [None]
  - INSOMNIA [None]
  - IRRITABILITY [None]
  - PAIN IN EXTREMITY [None]
  - RED BLOOD CELL COUNT DECREASED [None]
  - SINUSITIS [None]
